FAERS Safety Report 18233547 (Version 3)
Quarter: 2020Q4

REPORT INFORMATION
  Report Type: Other
  Country: IT (occurrence: IT)
  Receive Date: 20200904
  Receipt Date: 20201210
  Transmission Date: 20210113
  Serious: Yes (Hospitalization, Other)
  Sender: FDA-Public Use
  Company Number: IT-VALIDUS PHARMACEUTICALS LLC-IT-2020VAL000741

PATIENT

DRUGS (9)
  1. OXYBUTYNIN HYDROCHLORIDE [Suspect]
     Active Substance: OXYBUTYNIN CHLORIDE
     Indication: DRUG ABUSE
     Dosage: 45 MG, TOTAL
     Route: 048
     Dates: start: 20200707, end: 20200707
  2. LEVOPRAID                          /01142501/ [Suspect]
     Active Substance: LEVOSULPIRIDE
     Indication: PRODUCT USED FOR UNKNOWN INDICATION
     Dosage: 50 MG, TOTAL
     Route: 065
     Dates: start: 20200707, end: 20200707
  3. DUTASTERIDE. [Suspect]
     Active Substance: DUTASTERIDE
     Indication: DRUG ABUSE
     Dosage: 7.5 MG, TOTAL
     Route: 065
     Dates: start: 20200707, end: 20200707
  4. RIVAROXABAN [Suspect]
     Active Substance: RIVAROXABAN
     Indication: PRODUCT USED FOR UNKNOWN INDICATION
     Dosage: 45 MG, TOTAL
     Route: 065
     Dates: start: 20200707, end: 20200707
  5. PANTOPRAZOLE [Suspect]
     Active Substance: PANTOPRAZOLE
     Indication: DRUG ABUSE
     Dosage: 2 DF, TOTAL
     Route: 065
     Dates: start: 20200707, end: 20200707
  6. CALCIUM FOLINATE [Suspect]
     Active Substance: LEUCOVORIN CALCIUM
     Indication: PRODUCT USED FOR UNKNOWN INDICATION
     Dosage: 45 MG, TOTAL
     Route: 065
     Dates: start: 20200707, end: 20200707
  7. LASIX [Suspect]
     Active Substance: FUROSEMIDE
     Indication: PRODUCT USED FOR UNKNOWN INDICATION
     Dosage: 50 MG, TOTAL
     Route: 065
     Dates: start: 20200707, end: 20200707
  8. MITTOVAL [Suspect]
     Active Substance: ALFUZOSIN HYDROCHLORIDE
     Indication: DRUG ABUSE
     Dosage: 60 MG, TOTAL
     Route: 048
     Dates: start: 20200707, end: 20200707
  9. XARELTO [Suspect]
     Active Substance: RIVAROXABAN
     Indication: DRUG ABUSE
     Dosage: UNK
     Route: 065
     Dates: start: 20200707, end: 20200707

REACTIONS (3)
  - Disorganised speech [Not Recovered/Not Resolved]
  - Intentional overdose [Not Recovered/Not Resolved]
  - Drug abuse [Not Recovered/Not Resolved]

NARRATIVE: CASE EVENT DATE: 20200707
